FAERS Safety Report 18782625 (Version 1)
Quarter: 2021Q1

REPORT INFORMATION
  Report Type: Spontaneous
  Country: US (occurrence: US)
  Receive Date: 20210125
  Receipt Date: 20210125
  Transmission Date: 20210419
  Serious: No
  Sender: FDA-Public Use
  Company Number: US-ALLERGAN-2030630US

PATIENT
  Age: 73 Year
  Sex: Female

DRUGS (2)
  1. ALPHAGAN P [Concomitant]
     Active Substance: BRIMONIDINE TARTRATE
     Indication: GLAUCOMA
     Route: 047
  2. RESTASIS [Suspect]
     Active Substance: CYCLOSPORINE
     Indication: DRY EYE
     Dosage: 2 GTT, BID
     Route: 047
     Dates: start: 202008, end: 202008

REACTIONS (4)
  - Product storage error [Unknown]
  - Product use complaint [Unknown]
  - Product dose omission issue [Unknown]
  - Burning sensation [Unknown]

NARRATIVE: CASE EVENT DATE: 202008
